FAERS Safety Report 13018961 (Version 1)
Quarter: 2016Q4

REPORT INFORMATION
  Report Type: Spontaneous
  Country: MX (occurrence: MX)
  Receive Date: 20161212
  Receipt Date: 20161212
  Transmission Date: 20170207
  Serious: Yes (Other)
  Sender: FDA-Public Use
  Company Number: MX-PFIZER INC-2016572332

PATIENT
  Age: 85 Year
  Sex: Male

DRUGS (1)
  1. LYRICA [Suspect]
     Active Substance: PREGABALIN
     Indication: HERPES VIRUS INFECTION
     Dosage: UNK

REACTIONS (5)
  - Fall [Not Recovered/Not Resolved]
  - Abasia [Not Recovered/Not Resolved]
  - Anger [Not Recovered/Not Resolved]
  - Hip fracture [Not Recovered/Not Resolved]
  - Somnolence [Not Recovered/Not Resolved]
